FAERS Safety Report 16673092 (Version 4)
Quarter: 2019Q3

REPORT INFORMATION
  Report Type: Spontaneous
  Country: US (occurrence: US)
  Receive Date: 20190806
  Receipt Date: 20190919
  Transmission Date: 20191004
  Serious: No
  Sender: FDA-Public Use
  Company Number: US-PFIZER INC-2019330934

PATIENT
  Age: 38 Year
  Sex: Male

DRUGS (1)
  1. CHANTIX [Suspect]
     Active Substance: VARENICLINE TARTRATE
     Indication: SMOKING CESSATION THERAPY
     Dosage: 1 MG, UNK
     Dates: start: 20190701

REACTIONS (4)
  - Stress [Unknown]
  - Therapeutic product effect decreased [Unknown]
  - Oral pain [Unknown]
  - Odynophagia [Unknown]

NARRATIVE: CASE EVENT DATE: 201907
